FAERS Safety Report 12512603 (Version 1)
Quarter: 2016Q2

REPORT INFORMATION
  Report Type: Spontaneous
  Country: US (occurrence: None)
  Receive Date: 20160629
  Receipt Date: 20160629
  Transmission Date: 20160815
  Serious: Yes (Life-Threatening, Hospitalization)
  Sender: FDA-Public Use
  Company Number: None

PATIENT
  Age: 44 Year
  Sex: Female
  Weight: 176.9 kg

DRUGS (27)
  1. ADVAIR HFA [Concomitant]
     Active Substance: FLUTICASONE PROPIONATE\SALMETEROL XINAFOATE
  2. VITAMIN D3 [Concomitant]
     Active Substance: CHOLECALCIFEROL
  3. AMITRYPTALINE [Concomitant]
     Active Substance: AMITRIPTYLINE
  4. METANX [Concomitant]
     Active Substance: LEVOMEFOLATE CALCIUM\METHYLCOBALAMIN\PYRIDOXAL PHOSPHATE ANHYDROUS
  5. FISH OIL [Concomitant]
     Active Substance: FISH OIL
  6. SYNTHROID [Concomitant]
     Active Substance: LEVOTHYROXINE SODIUM
  7. VALIUM [Concomitant]
     Active Substance: DIAZEPAM
  8. COCONUT OIL [Concomitant]
     Active Substance: COCONUT OIL
  9. ATORVASTATIN CALCIUM TABLETS, 20 MG APOTEX CORP [Suspect]
     Active Substance: ATORVASTATIN CALCIUM
     Indication: BLOOD CHOLESTEROL INCREASED
     Route: 048
     Dates: start: 20151008, end: 20160627
  10. PROAIR HFA [Concomitant]
     Active Substance: ALBUTEROL SULFATE
  11. PHENERGAN [Concomitant]
     Active Substance: PROMETHAZINE HYDROCHLORIDE
  12. IPRATROPIUM [Concomitant]
     Active Substance: IPRATROPIUM
  13. NYUCYNTA [Concomitant]
  14. GABAPENTIN. [Concomitant]
     Active Substance: GABAPENTIN
  15. TIZANIDINE. [Concomitant]
     Active Substance: TIZANIDINE
  16. WARAFIN [Concomitant]
     Active Substance: WARFARIN
  17. AZESTALINE [Concomitant]
  18. B1 [Concomitant]
  19. BIOTIN [Concomitant]
     Active Substance: BIOTIN
  20. MECLIZINE [Concomitant]
     Active Substance: MECLIZINE HYDROCHLORIDE
  21. MAGNESIUM [Concomitant]
     Active Substance: MAGNESIUM
  22. ALPHA LIPOIC ACID [Concomitant]
     Active Substance: .ALPHA.-LIPOIC ACID
  23. B2 [Concomitant]
  24. CALCIUM [Concomitant]
     Active Substance: CALCIUM
  25. CHROMIUM  PICOLINATE [Concomitant]
     Active Substance: CHROMIUM PICOLINATE
  26. BACLOFEN. [Concomitant]
     Active Substance: BACLOFEN
  27. ZOMIG [Concomitant]
     Active Substance: ZOLMITRIPTAN

REACTIONS (8)
  - Facial paralysis [None]
  - Monoplegia [None]
  - Neck pain [None]
  - Dizziness [None]
  - Dyspnoea [None]
  - Arthralgia [None]
  - Gait disturbance [None]
  - Headache [None]

NARRATIVE: CASE EVENT DATE: 20160627
